FAERS Safety Report 5300819-9 (Version None)
Quarter: 2007Q1

REPORT INFORMATION
  Report Type: 
  Country: None (occurrence: None)
  Receive Date: 20070201
  Receipt Date: 20061014
  Transmission Date: 20070707
  Serious: No
  Sender: FDA-Public Use
  Company Number: 2006PV023154

PATIENT
  Age: 56 Year
  Sex: Female
  Weight: 136.0791 kg

DRUGS (3)
  1. BYETTA [Suspect]
     Indication: DIABETES MELLITUS NON-INSULIN-DEPENDENT
     Dosage: SEE IMAGE
     Route: 058
     Dates: start: 20060601, end: 20060701
  2. BYETTA [Suspect]
     Indication: DIABETES MELLITUS NON-INSULIN-DEPENDENT
     Dosage: SEE IMAGE
     Route: 058
     Dates: start: 20060701
  3. ACTOPLUSMET 15/500 [Concomitant]

REACTIONS (5)
  - ASTHENIA [None]
  - BLOOD CALCIUM INCREASED [None]
  - INJECTION SITE ERYTHEMA [None]
  - NAUSEA [None]
  - WEIGHT DECREASED [None]
